FAERS Safety Report 6520521-5 (Version None)
Quarter: 2009Q4

REPORT INFORMATION
  Report Type: 
  Country: None (occurrence: None)
  Receive Date: 20091229
  Receipt Date: 20091216
  Transmission Date: 20100525
  Serious: Yes (Hospitalization)
  Sender: FDA-Public Use
  Company Number: B0619480A

PATIENT
  Sex: Male

DRUGS (1)
  1. LAPATINIB [Suspect]

REACTIONS (1)
  - SYNCOPE [None]
